FAERS Safety Report 12634416 (Version 1)
Quarter: 2016Q3

REPORT INFORMATION
  Report Type: Spontaneous
  Country: US (occurrence: US)
  Receive Date: 20160809
  Receipt Date: 20160809
  Transmission Date: 20161109
  Serious: No
  Sender: FDA-Public Use
  Company Number: US-LPDUSPRD-20150579

PATIENT
  Age: 65 Year
  Sex: Female

DRUGS (1)
  1. PROGESTERONE INJECTION (0750-01) [Suspect]
     Active Substance: PROGESTERONE
     Dosage: DOSE NOT PROVIDED
     Route: 065

REACTIONS (4)
  - Dyspareunia [Unknown]
  - Vaginal haemorrhage [Unknown]
  - Onychoclasis [Unknown]
  - Alopecia [Unknown]
